FAERS Safety Report 14568723 (Version 1)
Quarter: 2018Q1

REPORT INFORMATION
  Report Type: Spontaneous
  Country: US (occurrence: US)
  Receive Date: 20180223
  Receipt Date: 20180223
  Transmission Date: 20180509
  Serious: No
  Sender: FDA-Public Use
  Company Number: US-HTU-2017US013587

PATIENT
  Age: 64 Year
  Sex: Female

DRUGS (3)
  1. FOLFIRI [Suspect]
     Active Substance: FLUOROURACIL\IRINOTECAN\LEUCOVORIN
  2. LEUCOVORIN. [Suspect]
     Active Substance: LEUCOVORIN
  3. PALONOSETRON HYDROCHLORIDE. [Suspect]
     Active Substance: PALONOSETRON HYDROCHLORIDE
     Indication: PROPHYLAXIS OF NAUSEA AND VOMITING

REACTIONS (3)
  - Urticaria [Unknown]
  - Tongue oedema [Unknown]
  - Hypersensitivity [Unknown]
